FAERS Safety Report 10078221 (Version 4)
Quarter: 2015Q1

REPORT INFORMATION
  Report Type: Report from Study
  Country: CA (occurrence: CA)
  Receive Date: 20140415
  Receipt Date: 20150122
  Transmission Date: 20150720
  Serious: Yes (Hospitalization, Other)
  Sender: FDA-Public Use
  Company Number: CA-ROCHE-1157136

PATIENT
  Age: 59 Year
  Sex: Female
  Weight: 58 kg

DRUGS (11)
  1. ACTEMRA [Suspect]
     Active Substance: TOCILIZUMAB
     Indication: RHEUMATOID ARTHRITIS
     Route: 042
     Dates: start: 20120809
  2. ACETAMINOPHEN. [Concomitant]
     Active Substance: ACETAMINOPHEN
     Route: 048
     Dates: start: 20130529
  3. CLOXACILLIN [Suspect]
     Active Substance: CLOXACILLIN
     Indication: ULCER
     Route: 065
     Dates: start: 20121122, end: 201211
  4. RITUXAN [Suspect]
     Active Substance: RITUXIMAB
     Indication: RHEUMATOID ARTHRITIS
     Dosage: DAY 1 AND 15
     Route: 042
     Dates: start: 20130529
  5. FOLIC ACID. [Concomitant]
     Active Substance: FOLIC ACID
  6. ACTEMRA [Suspect]
     Active Substance: TOCILIZUMAB
     Route: 042
     Dates: start: 20121101, end: 20130117
  7. TYLENOL #1 (CANADA) [Concomitant]
     Active Substance: ACETAMINOPHEN\CAFFEINE\CODEINE PHOSPHATE
  8. DIPHENHYDRAMINE HCL [Concomitant]
     Active Substance: DIPHENHYDRAMINE HYDROCHLORIDE
     Route: 048
     Dates: start: 20130529
  9. TYLENOL EXTRA STRENGTH [Concomitant]
     Active Substance: ACETAMINOPHEN
     Indication: ARTHRITIS
  10. METHYLPREDNISOLONE. [Concomitant]
     Active Substance: METHYLPREDNISOLONE
     Route: 042
     Dates: start: 20130529
  11. CELEBREX [Concomitant]
     Active Substance: CELECOXIB

REACTIONS (10)
  - Pneumonia [Not Recovered/Not Resolved]
  - Ulcer [Not Recovered/Not Resolved]
  - Weight increased [Not Recovered/Not Resolved]
  - Infusion related reaction [Unknown]
  - Infection [Unknown]
  - Nausea [Unknown]
  - Weight decreased [Recovering/Resolving]
  - Dizziness [Unknown]
  - Treatment failure [Unknown]
  - Infection [Unknown]

NARRATIVE: CASE EVENT DATE: 201210
